APPROVED DRUG PRODUCT: METRONIDAZOLE
Active Ingredient: METRONIDAZOLE
Strength: 0.75%
Dosage Form/Route: GEL;VAGINAL
Application: A213648 | Product #001 | TE Code: AB
Applicant: SOLARIS PHARMA CORP
Approved: Oct 14, 2021 | RLD: No | RS: No | Type: RX